FAERS Safety Report 5377524-6 (Version None)
Quarter: 2007Q3

REPORT INFORMATION
  Report Type: 
  Country: None (occurrence: None)
  Receive Date: 20070703
  Receipt Date: 20070628
  Transmission Date: 20080115
  Serious: Yes (Death)
  Sender: FDA-Public Use
  Company Number: PHEH2007US09443

PATIENT
  Age: 87 Year
  Sex: Female

DRUGS (1)
  1. ZELNORM [Suspect]
     Dosage: 2 MG, BID
     Route: 048

REACTIONS (1)
  - DEATH [None]
